FAERS Safety Report 17369341 (Version 1)
Quarter: 2020Q1

REPORT INFORMATION
  Report Type: Spontaneous
  Country: US (occurrence: US)
  Receive Date: 20200203
  Receipt Date: 20200203
  Transmission Date: 20200409
  Serious: Yes (Death, Hospitalization)
  Sender: FDA-Public Use
  Company Number: None

PATIENT
  Age: 67 Year
  Sex: Female
  Weight: 52.8 kg

DRUGS (3)
  1. NIVOLUMAB [Suspect]
     Active Substance: NIVOLUMAB
     Indication: SQUAMOUS CELL CARCINOMA
     Route: 042
     Dates: start: 20190617, end: 20191104
  2. GABAPENTIN. [Suspect]
     Active Substance: GABAPENTIN
  3. PEMBROLIZUMAB. [Concomitant]
     Active Substance: PEMBROLIZUMAB
     Dates: start: 20200115, end: 20200115

REACTIONS (2)
  - Hyponatraemia [None]
  - Ataxia [None]

NARRATIVE: CASE EVENT DATE: 20200121
